FAERS Safety Report 18936256 (Version 1)
Quarter: 2021Q1

REPORT INFORMATION
  Report Type: Spontaneous
  Country: US (occurrence: US)
  Receive Date: 20210224
  Receipt Date: 20210224
  Transmission Date: 20210420
  Serious: No
  Sender: FDA-Public Use
  Company Number: US-JNJFOC-20210228729

PATIENT
  Age: 21 Year
  Sex: Female

DRUGS (1)
  1. SPRAVATO [Suspect]
     Active Substance: ESKETAMINE
     Indication: DEPRESSION
     Route: 065

REACTIONS (6)
  - Head discomfort [Unknown]
  - Fatigue [Unknown]
  - Feeling abnormal [Unknown]
  - Pallor [Unknown]
  - Eating disorder [Unknown]
  - Dehydration [Unknown]
